FAERS Safety Report 8495111-8 (Version None)
Quarter: 2012Q3

REPORT INFORMATION
  Report Type: 
  Country: None (occurrence: None)
  Receive Date: 20120709
  Receipt Date: 20120629
  Transmission Date: 20120928
  Serious: Yes (Hospitalization)
  Sender: FDA-Public Use
  Company Number: US-JNJFOC-20120700826

PATIENT
  Sex: Male
  Weight: 45.4 kg

DRUGS (12)
  1. BALNEOL [Concomitant]
  2. ACETAMINOPHEN [Concomitant]
  3. MIRALAX [Concomitant]
  4. PROBIOTICS [Concomitant]
  5. OXYCODONE HCL [Concomitant]
  6. OMEPRAZOLE [Concomitant]
  7. MESALAMINE [Suspect]
     Indication: INFLAMMATORY BOWEL DISEASE
     Route: 048
  8. ANTIBIOTICS FOR IBD [Concomitant]
     Indication: INFLAMMATORY BOWEL DISEASE
  9. DOCUSATE [Concomitant]
  10. REMICADE [Suspect]
     Indication: INFLAMMATORY BOWEL DISEASE
     Route: 042
     Dates: start: 20110106
  11. MORPHINE [Concomitant]
  12. FERROUS SULFATE TAB [Concomitant]

REACTIONS (1)
  - ANAL ABSCESS [None]
